FAERS Safety Report 4385889-7 (Version None)
Quarter: 2004Q2

REPORT INFORMATION
  Report Type: 
  Country: None (occurrence: None)
  Receive Date: 20040628
  Receipt Date: 20040614
  Transmission Date: 20050107
  Serious: Yes (Other)
  Sender: FDA-Public Use
  Company Number: GB-GLAXOSMITHKLINE-B0335597A

PATIENT
  Sex: Male

DRUGS (3)
  1. AVANDIA [Suspect]
     Indication: DIABETES MELLITUS NON-INSULIN-DEPENDENT
     Dosage: 4MG TWICE PER DAY
     Route: 048
     Dates: start: 20010101
  2. TILDIEM [Concomitant]
     Route: 065
  3. RAMIPRIL [Concomitant]
     Route: 065

REACTIONS (5)
  - ANGINA PECTORIS [None]
  - DIFFICULTY IN WALKING [None]
  - DYSPNOEA [None]
  - HEADACHE [None]
  - MIDDLE INSOMNIA [None]
